FAERS Safety Report 19755342 (Version 2)
Quarter: 2022Q3

REPORT INFORMATION
  Report Type: Spontaneous
  Country: US (occurrence: US)
  Receive Date: 20210827
  Receipt Date: 20220714
  Transmission Date: 20221026
  Serious: No
  Sender: FDA-Public Use
  Company Number: US-RECKITT BENCKISER HEALTHCARE INT LIMITED-RB-90010-2021

PATIENT
  Age: 22 Year
  Sex: Male
  Weight: 195.01 kg

DRUGS (1)
  1. MUCINEX DM MAXIMUM STRENGTH [Suspect]
     Active Substance: DEXTROMETHORPHAN HYDROBROMIDE\GUAIFENESIN
     Dosage: 2 DOSAGE FORM, SINGLE
     Route: 065

REACTIONS (2)
  - Accidental overdose [Unknown]
  - Abdominal discomfort [Unknown]
